FAERS Safety Report 9603158 (Version 2)
Quarter: 2016Q1

REPORT INFORMATION
  Report Type: Report from Study
  Country: NO (occurrence: NO)
  Receive Date: 20131007
  Receipt Date: 20160217
  Transmission Date: 20160526
  Serious: Yes (Disabling, Congenital Anomaly, Other)
  Sender: FDA-Public Use
  Company Number: NO-WATSON-2013-17674

PATIENT

DRUGS (2)
  1. LEVETIRACETAM (UNKNOWN) [Suspect]
     Active Substance: LEVETIRACETAM
     Dosage: 1000 MG, DAILY (1ST TRIMENSTER)
     Route: 064
  2. LEVETIRACETAM (UNKNOWN) [Suspect]
     Active Substance: LEVETIRACETAM
     Indication: EPILEPSY
     Dosage: UNK
     Route: 064

REACTIONS (2)
  - Mixed deafness [Unknown]
  - Foetal exposure during pregnancy [Recovered/Resolved]
